FAERS Safety Report 20009886 (Version 2)
Quarter: 2022Q1

REPORT INFORMATION
  Report Type: Report from Study
  Country: US (occurrence: US)
  Receive Date: 20211028
  Receipt Date: 20220127
  Transmission Date: 20220423
  Serious: Yes (Other)
  Sender: FDA-Public Use
  Company Number: US-NOVARTISPH-NVSC2021US242527

PATIENT
  Sex: Male

DRUGS (1)
  1. ENTRESTO [Suspect]
     Active Substance: SACUBITRIL\VALSARTAN
     Indication: Product used for unknown indication
     Dosage: 24 MG, BID (24/26)
     Route: 048

REACTIONS (3)
  - Glycosylated haemoglobin increased [Recovering/Resolving]
  - Foot deformity [Recovering/Resolving]
  - Localised infection [Recovering/Resolving]
